FAERS Safety Report 7374314-X (Version None)
Quarter: 2011Q1

REPORT INFORMATION
  Report Type: 
  Country: None (occurrence: None)
  Receive Date: 20110225
  Receipt Date: 20110112
  Transmission Date: 20110831
  Serious: No
  Sender: FDA-Public Use
  Company Number: 321496

PATIENT
  Age: 43 Year
  Sex: Male

DRUGS (3)
  1. VICTOZA [Suspect]
     Indication: TYPE 2 DIABETES MELLITUS
     Dosage: 1.2 MG, QD, SUBCUTANEOUS, 1.8 MG, QD, SUBCUTANEOUS, 0.6 MG, QD, SUBCUTANEOUS, 1.2 MG, QD, SUBCUTANEO
     Route: 058
     Dates: end: 20110108
  2. VICTOZA [Suspect]
     Indication: TYPE 2 DIABETES MELLITUS
     Dosage: 1.2 MG, QD, SUBCUTANEOUS, 1.8 MG, QD, SUBCUTANEOUS, 0.6 MG, QD, SUBCUTANEOUS, 1.2 MG, QD, SUBCUTANEO
     Route: 058
     Dates: start: 20101201
  3. VICTOZA [Suspect]
     Indication: TYPE 2 DIABETES MELLITUS
     Dosage: 1.2 MG, QD, SUBCUTANEOUS, 1.8 MG, QD, SUBCUTANEOUS, 0.6 MG, QD, SUBCUTANEOUS, 1.2 MG, QD, SUBCUTANEO
     Route: 058
     Dates: start: 20110111, end: 20110111

REACTIONS (2)
  - FLATULENCE [None]
  - ERUCTATION [None]
